FAERS Safety Report 8613074-9 (Version None)
Quarter: 2012Q3

REPORT INFORMATION
  Report Type: 
  Country: None (occurrence: None)
  Receive Date: 20120822
  Receipt Date: 20120820
  Transmission Date: 20120928
  Serious: Yes (Hospitalization)
  Sender: FDA-Public Use
  Company Number: US-GILEAD-2012-0059291

PATIENT
  Sex: Female

DRUGS (4)
  1. LETAIRIS [Suspect]
     Indication: SCLERODERMA
  2. REMODULIN [Concomitant]
     Indication: PULMONARY HYPERTENSION
  3. LETAIRIS [Suspect]
     Indication: PULMONARY HYPERTENSION
     Dosage: 10 MG, UNK
     Route: 048
     Dates: start: 20120113
  4. LETAIRIS [Suspect]
     Indication: DERMATOMYOSITIS

REACTIONS (1)
  - DRUG THERAPY CHANGED [None]
